FAERS Safety Report 24198760 (Version 2)
Quarter: 2024Q4

REPORT INFORMATION
  Report Type: Spontaneous
  Country: US (occurrence: US)
  Receive Date: 20240812
  Receipt Date: 20241004
  Transmission Date: 20250115
  Serious: No
  Sender: SANDOZ
  Company Number: US-Coherus Biosciences, Inc.-2024-COH-US000308

PATIENT
  Sex: Male

DRUGS (1)
  1. CIMERLI [Suspect]
     Active Substance: RANIBIZUMAB-EQRN
     Indication: Product used for unknown indication
     Dosage: UNK

REACTIONS (3)
  - Burning sensation [Unknown]
  - Pain [Unknown]
  - Drug ineffective [Unknown]
